FAERS Safety Report 24047634 (Version 1)
Quarter: 2024Q3

REPORT INFORMATION
  Report Type: Spontaneous
  Country: FR (occurrence: FR)
  Receive Date: 20240703
  Receipt Date: 20240703
  Transmission Date: 20241017
  Serious: Yes (Life-Threatening)
  Sender: EISAI
  Company Number: None

PATIENT
  Age: 52 Year
  Sex: Female
  Weight: 66.5 kg

DRUGS (4)
  1. FYCOMPA [Suspect]
     Active Substance: PERAMPANEL
     Indication: Suicide attempt
     Route: 048
     Dates: start: 20240407, end: 20240407
  2. CLOBAZAM [Suspect]
     Active Substance: CLOBAZAM
     Indication: Suicide attempt
     Dosage: DOSE UNKNOWN.
     Route: 048
     Dates: start: 20240407, end: 20240407
  3. TEGRETOL [Suspect]
     Active Substance: CARBAMAZEPINE
     Indication: Suicide attempt
     Route: 048
     Dates: start: 20240407, end: 20240407
  4. CENOBAMATE [Suspect]
     Active Substance: CENOBAMATE
     Indication: Suicide attempt
     Route: 048
     Dates: start: 20240407, end: 20240407

REACTIONS (2)
  - Coma [Recovered/Resolved]
  - Suicide attempt [Recovered/Resolved]

NARRATIVE: CASE EVENT DATE: 20240407
